FAERS Safety Report 20502547 (Version 1)
Quarter: 2022Q1

REPORT INFORMATION
  Report Type: Spontaneous
  Country: US (occurrence: None)
  Receive Date: 20220220
  Receipt Date: 20220220
  Transmission Date: 20220423
  Serious: Yes (Hospitalization, Other)
  Sender: FDA-Public Use
  Company Number: None

PATIENT
  Age: 42 Year
  Sex: Male
  Weight: 72 kg

DRUGS (1)
  1. PURPLE [Suspect]
     Active Substance: ALLANTOIN
     Indication: Sleep disorder
     Dosage: FREQUENCY : AS NEEDED;?
     Route: 055
     Dates: start: 20220101, end: 20220212

REACTIONS (17)
  - Vomiting [None]
  - Diarrhoea [None]
  - Confusional state [None]
  - Repetitive speech [None]
  - Disorganised speech [None]
  - Speech disorder [None]
  - Abnormal behaviour [None]
  - Anal incontinence [None]
  - Dyskinesia [None]
  - Onychophagia [None]
  - Anxiety [None]
  - Glassy eyes [None]
  - Encephalopathy [None]
  - Laboratory test interference [None]
  - Acute psychosis [None]
  - Urinary tract infection [None]
  - Sepsis [None]

NARRATIVE: CASE EVENT DATE: 20220212
